FAERS Safety Report 7423058-4 (Version None)
Quarter: 2011Q2

REPORT INFORMATION
  Report Type: 
  Country: None (occurrence: None)
  Receive Date: 20110419
  Receipt Date: 20110414
  Transmission Date: 20111010
  Serious: Yes (Death)
  Sender: FDA-Public Use
  Company Number: US-ELI_LILLY_AND_COMPANY-US201104004565

PATIENT
  Sex: Male

DRUGS (1)
  1. GEMZAR [Suspect]
     Indication: GASTRIC CANCER
     Dosage: 1190 MG, UNK
     Dates: start: 20100628

REACTIONS (2)
  - OFF LABEL USE [None]
  - DEATH [None]
